FAERS Safety Report 11866551 (Version 2)
Quarter: 2016Q1

REPORT INFORMATION
  Report Type: Spontaneous
  Country: US (occurrence: US)
  Receive Date: 20151224
  Receipt Date: 20160107
  Transmission Date: 20160526
  Serious: Yes (Other)
  Sender: FDA-Public Use
  Company Number: US-ROCHE-1638100

PATIENT
  Sex: Male
  Weight: 69.46 kg

DRUGS (1)
  1. ESBRIET [Suspect]
     Active Substance: PIRFENIDONE
     Indication: IDIOPATHIC PULMONARY FIBROSIS
     Route: 048
     Dates: start: 20150507

REACTIONS (5)
  - Lung neoplasm malignant [Unknown]
  - Musculoskeletal chest pain [Unknown]
  - Sputum increased [Unknown]
  - Cough [Unknown]
  - Dyspnoea exertional [Unknown]
